FAERS Safety Report 13951827 (Version 1)
Quarter: 2017Q3

REPORT INFORMATION
  Report Type: Other
  Country: GB (occurrence: DE)
  Receive Date: 20170908
  Receipt Date: 20170908
  Transmission Date: 20171128
  Serious: Yes (Life-Threatening, Other)
  Sender: FDA-Public Use
  Company Number: DE-INTERNATIONAL MEDICATION SYSTEMS, LIMITED-2025804

PATIENT
  Age: 25 Year
  Sex: Female

DRUGS (1)
  1. SODIUM HYDROGEN CARBONATE [Suspect]
     Active Substance: SODIUM BICARBONATE
     Indication: ARRHYTHMIA

REACTIONS (1)
  - Drug ineffective [Recovering/Resolving]
